FAERS Safety Report 10491607 (Version 1)
Quarter: 2014Q4

REPORT INFORMATION
  Report Type: Spontaneous
  Country: US (occurrence: US)
  Receive Date: 20141002
  Receipt Date: 20141002
  Transmission Date: 20150528
  Serious: No
  Sender: FDA-Public Use
  Company Number: US-GLAXOSMITHKLINE-A1056193A

PATIENT
  Age: 62 Year
  Sex: Female

DRUGS (12)
  1. GLYBURIDE. [Concomitant]
     Active Substance: GLYBURIDE
  2. LASIX [Concomitant]
     Active Substance: FUROSEMIDE
  3. ZOLOFT [Concomitant]
     Active Substance: SERTRALINE HYDROCHLORIDE
  4. ADVAIR HFA [Suspect]
     Active Substance: FLUTICASONE PROPIONATE\SALMETEROL XINAFOATE
     Indication: ASTHMA
     Dosage: 1PUFF TWICE PER DAY
     Route: 055
  5. NORVASC [Concomitant]
     Active Substance: AMLODIPINE BESYLATE
  6. METOPROLOL [Concomitant]
     Active Substance: METOPROLOL
  7. PRAVASTATIN [Concomitant]
     Active Substance: PRAVASTATIN\PRAVASTATIN SODIUM
  8. ALBUTEROL. [Concomitant]
     Active Substance: ALBUTEROL
  9. LOSARTAN [Concomitant]
     Active Substance: LOSARTAN
  10. SPIRONOLACTONE. [Concomitant]
     Active Substance: SPIRONOLACTONE
  11. HYDRALAZINE [Concomitant]
     Active Substance: HYDRALAZINE HYDROCHLORIDE
  12. LORTAB [Concomitant]
     Active Substance: ACETAMINOPHEN\HYDROCODONE BITARTRATE

REACTIONS (3)
  - Expired product administered [Unknown]
  - Chest pain [Not Recovered/Not Resolved]
  - Dyspnoea [Unknown]

NARRATIVE: CASE EVENT DATE: 201312
